FAERS Safety Report 18600672 (Version 1)
Quarter: 2020Q4

REPORT INFORMATION
  Report Type: Spontaneous
  Country: NL (occurrence: NL)
  Receive Date: 20201210
  Receipt Date: 20201210
  Transmission Date: 20210114
  Serious: Yes (Other)
  Sender: FDA-Public Use
  Company Number: NL-PFIZER INC-2020462290

PATIENT
  Age: 51 Year
  Sex: Female
  Weight: 76 kg

DRUGS (5)
  1. VALACICLOVIR [Suspect]
     Active Substance: VALACYCLOVIR HYDROCHLORIDE
     Indication: PROPHYLAXIS
     Dosage: 500 MG, 1X/DAY MAINTENANCE DOSE
     Dates: start: 20200917, end: 20201012
  2. LEVONORGESTREL. [Concomitant]
     Active Substance: LEVONORGESTREL
     Dosage: 1.5 MG
  3. IBUPROFEN. [Suspect]
     Active Substance: IBUPROFEN
     Indication: PAIN
     Dosage: 600 MG FOR A COUPLE OF DAYS EVERY 6 HOURS
     Dates: start: 20200917, end: 2020
  4. IBUPROFEN. [Suspect]
     Active Substance: IBUPROFEN
     Dosage: 400 MG COUPLE OF TIMES A DAY
     Dates: start: 2020
  5. COLECALCIFEROL [Concomitant]
     Active Substance: CHOLECALCIFEROL
     Dosage: 10 MG, 1X/DAY

REACTIONS (3)
  - Somnolence [Recovered/Resolved]
  - Extra dose administered [Unknown]
  - Loss of consciousness [Recovered/Resolved]

NARRATIVE: CASE EVENT DATE: 20200917
